FAERS Safety Report 18388346 (Version 1)
Quarter: 2020Q4

REPORT INFORMATION
  Report Type: Spontaneous
  Country: CA (occurrence: CA)
  Receive Date: 20201015
  Receipt Date: 20201015
  Transmission Date: 20210114
  Serious: Yes (Hospitalization, Other)
  Sender: FDA-Public Use
  Company Number: CA-SAMSUNG BIOEPIS-SB-2020-31065

PATIENT
  Age: 50 Year
  Sex: Male

DRUGS (2)
  1. ETANERCEPT [Suspect]
     Active Substance: ETANERCEPT
     Dosage: UNKNOWN
     Route: 058
  2. ETANERCEPT [Suspect]
     Active Substance: ETANERCEPT
     Indication: ANKYLOSING SPONDYLITIS
     Route: 058

REACTIONS (7)
  - Ligament sprain [Unknown]
  - Pyrexia [Unknown]
  - Loss of consciousness [Unknown]
  - Pancreatic cyst [Unknown]
  - Feeding disorder [Unknown]
  - Pancreatitis [Unknown]
  - Thrombosis [Unknown]
